FAERS Safety Report 17494973 (Version 1)
Quarter: 2020Q1

REPORT INFORMATION
  Report Type: Spontaneous
  Country: US (occurrence: US)
  Receive Date: 20200221
  Receipt Date: 20200221
  Transmission Date: 20200409
  Serious: Yes (Hospitalization, Other)
  Sender: FDA-Public Use
  Company Number: None

PATIENT

DRUGS (2)
  1. CARBOPLATIN INJECTION [Concomitant]
     Active Substance: CARBOPLATIN
     Dates: start: 20200218, end: 20200218
  2. CARBOPLATIN. [Suspect]
     Active Substance: CARBOPLATIN
     Route: 042
     Dates: start: 20200218, end: 20200218

REACTIONS (2)
  - Unresponsive to stimuli [None]
  - Malaise [None]

NARRATIVE: CASE EVENT DATE: 20200218
